FAERS Safety Report 8501889-7 (Version None)
Quarter: 2012Q2

REPORT INFORMATION
  Report Type: 
  Country: None (occurrence: None)
  Receive Date: 20120405
  Receipt Date: 20110316
  Transmission Date: 20120825
  Serious: Yes (Other)
  Sender: FDA-Public Use
  Company Number: PHHY2011US20047

PATIENT
  Age: 77 Year
  Sex: Female
  Weight: 59.9 kg

DRUGS (6)
  1. CALCIUM CARBONATE [Concomitant]
  2. DURAGESIC-100 [Concomitant]
  3. PREDNISONE TAB [Concomitant]
  4. PREVACID (LANSOPRAZOL [Concomitant]
  5. RECLAST [Suspect]
     Indication: OSTEOPOROSIS POSTMENOPAUSAL
     Dosage: 5 MG,  INFUSION
     Dates: start: 20110304
  6. VITAMIN D [Concomitant]

REACTIONS (2)
  - SWELLING [None]
  - PAIN IN JAW [None]
